FAERS Safety Report 10936251 (Version 1)
Quarter: 2015Q1

REPORT INFORMATION
  Report Type: Spontaneous
  Country: US (occurrence: None)
  Receive Date: 20150319
  Receipt Date: 20150319
  Transmission Date: 20150721
  Serious: No
  Sender: FDA-Public Use
  Company Number: None

PATIENT
  Age: 65 Year
  Sex: Female

DRUGS (6)
  1. LIDOCAINE. [Concomitant]
     Active Substance: LIDOCAINE
  2. HYDROCODONE/APAP [Concomitant]
     Active Substance: ACETAMINOPHEN\HYDROCODONE
  3. AMPYRA [Suspect]
     Active Substance: DALFAMPRIDINE
     Indication: MULTIPLE SCLEROSIS
     Route: 048
     Dates: start: 201307
  4. ESTRADIOL VAGINAL CREAM [Concomitant]
  5. FAMOTIDINE. [Concomitant]
     Active Substance: FAMOTIDINE
  6. GABAPENTIN. [Concomitant]
     Active Substance: GABAPENTIN

REACTIONS (6)
  - Back pain [None]
  - Micturition urgency [None]
  - Dysuria [None]
  - Chills [None]
  - Pain [None]
  - Pollakiuria [None]

NARRATIVE: CASE EVENT DATE: 20150221
